FAERS Safety Report 4294587-X (Version None)
Quarter: 2004Q1

REPORT INFORMATION
  Report Type: 
  Country: None (occurrence: None)
  Receive Date: 20040212
  Receipt Date: 20040209
  Transmission Date: 20041129
  Serious: Yes (Other)
  Sender: FDA-Public Use
  Company Number: 200328472BWH

PATIENT
  Age: 38 Year
  Sex: Male
  Weight: 99.7913 kg

DRUGS (2)
  1. LEVITRA [Suspect]
     Indication: ERECTILE DYSFUNCTION
     Dosage: 10 MG, TOTAL DAILY, ORAL
     Route: 048
     Dates: start: 20031116
  2. LORAZEPAM [Concomitant]

REACTIONS (6)
  - COMMUNICATION DISORDER [None]
  - CONVULSION [None]
  - FALL [None]
  - HEADACHE [None]
  - MEMORY IMPAIRMENT [None]
  - SYNCOPE [None]
